FAERS Safety Report 25363205 (Version 1)
Quarter: 2025Q2

REPORT INFORMATION
  Report Type: Spontaneous
  Country: US (occurrence: None)
  Receive Date: 20250524
  Receipt Date: 20250524
  Transmission Date: 20250716
  Serious: Yes (Hospitalization)
  Sender: FDA-CTU
  Company Number: None

PATIENT
  Sex: Female
  Weight: 94.05 kg

DRUGS (2)
  1. ADCIRCA [Suspect]
     Active Substance: TADALAFIL
     Indication: Pulmonary arterial hypertension
     Dosage: 40 MG DAILY ORAL
     Route: 048
     Dates: start: 20210402
  2. WINREVAIR [Suspect]
     Active Substance: SOTATERCEPT-CSRK

REACTIONS (3)
  - Fall [None]
  - Muscle contusion [None]
  - Cerebral haemorrhage [None]
